FAERS Safety Report 13353616 (Version 2)
Quarter: 2017Q4

REPORT INFORMATION
  Report Type: Spontaneous
  Country: CN (occurrence: CN)
  Receive Date: 20170321
  Receipt Date: 20171102
  Transmission Date: 20180320
  Serious: Yes (Hospitalization, Other)
  Sender: FDA-Public Use
  Company Number: CN-MACLEODS PHARMACEUTICALS US LTD-MAC2017004472

PATIENT

DRUGS (11)
  1. ASPIRIN. [Concomitant]
     Active Substance: ASPIRIN
     Dosage: 0.1 G,QN (EVERY NIGHT)
     Route: 048
     Dates: start: 20151107
  2. CLOPIDOGREL [Suspect]
     Active Substance: CLOPIDOGREL BISULFATE
     Dosage: 75 MG, QD
     Route: 048
     Dates: start: 20151107, end: 20151111
  3. ILOPROST. [Concomitant]
     Active Substance: ILOPROST
     Indication: ACUTE CORONARY SYNDROME
     Dosage: 50 MG, BID
     Route: 048
     Dates: start: 20151107
  4. CLOPIDOGREL [Suspect]
     Active Substance: CLOPIDOGREL BISULFATE
     Indication: ACUTE CORONARY SYNDROME
     Dosage: 300 MG, QD
     Route: 048
     Dates: start: 20151106, end: 20151106
  5. ASPIRIN. [Concomitant]
     Active Substance: ASPIRIN
     Indication: ACUTE CORONARY SYNDROME
     Dosage: .1 G, QD
     Route: 048
     Dates: start: 20151107
  6. RABEPRAZOLE [Concomitant]
     Active Substance: RABEPRAZOLE
     Indication: ACUTE CORONARY SYNDROME
     Dosage: 10 MG, QD
     Route: 048
     Dates: start: 20151107
  7. ATORVASTATIN [Concomitant]
     Active Substance: ATORVASTATIN
     Indication: ACUTE CORONARY SYNDROME
     Dosage: 20 MG, QD
     Route: 048
     Dates: start: 20151107
  8. TIROFIBAN [Concomitant]
     Active Substance: TIROFIBAN
     Indication: ACUTE CORONARY SYNDROME
     Dosage: 12.5 MG, QD (MAINTAINED FOR 40 H) Q6 H PUMPED IN
     Route: 042
     Dates: start: 20151106
  9. METOPROLOL. [Concomitant]
     Active Substance: METOPROLOL
     Indication: ACUTE CORONARY SYNDROME
     Dosage: 22.75 MG, QD
     Route: 048
     Dates: start: 20151107
  10. ASPIRIN. [Concomitant]
     Active Substance: ASPIRIN
     Dosage: 50 MG, BID (ENTRIC COATED TABLET)
     Route: 048
  11. ISOSORBIDE DINITRATE. [Concomitant]
     Active Substance: ISOSORBIDE DINITRATE
     Indication: ACUTE CORONARY SYNDROME
     Dosage: 50 MG, QD
     Route: 048
     Dates: start: 20151107

REACTIONS (7)
  - Drug resistance [Recovered/Resolved]
  - Chest pain [Recovered/Resolved]
  - Vascular stent thrombosis [Recovered/Resolved]
  - Hyperhidrosis [Recovered/Resolved]
  - Electrocardiogram ST segment elevation [Recovered/Resolved]
  - Vomiting [Recovered/Resolved]
  - Nausea [Recovered/Resolved]

NARRATIVE: CASE EVENT DATE: 20151107
